FAERS Safety Report 5553919-2 (Version None)
Quarter: 2007Q4

REPORT INFORMATION
  Report Type: 
  Country: None (occurrence: None)
  Receive Date: 20071212
  Receipt Date: 20071212
  Transmission Date: 20080405
  Serious: Yes (Other)
  Sender: FDA-Public Use
  Company Number: None

PATIENT
  Age: 60 Year
  Sex: Female
  Weight: 78.0187 kg

DRUGS (1)
  1. CHANTIX [Suspect]
     Indication: SMOKING CESSATION THERAPY
     Dosage: 0.5 - 1 MG QD PO , OVER 10 DAYS
     Route: 048
     Dates: start: 20071101, end: 20071110

REACTIONS (2)
  - NIGHTMARE [None]
  - SUICIDAL IDEATION [None]
